FAERS Safety Report 11431979 (Version 2)
Quarter: 2015Q4

REPORT INFORMATION
  Report Type: Spontaneous
  Country: US (occurrence: US)
  Receive Date: 20150828
  Receipt Date: 20151104
  Transmission Date: 20160304
  Serious: Yes (Hospitalization, Disabling)
  Sender: FDA-Public Use
  Company Number: US-MALLINCKRODT-T201503977

PATIENT
  Age: 53 Year
  Sex: Male

DRUGS (3)
  1. GABLOFEN [Suspect]
     Active Substance: BACLOFEN
     Dosage: UNK
     Route: 037
  2. GABLOFEN [Suspect]
     Active Substance: BACLOFEN
     Indication: MUSCLE SPASTICITY
     Dosage: 374.3 MCG/DAY
     Route: 037
  3. GABLOFEN [Suspect]
     Active Substance: BACLOFEN
     Dosage: 475 MCG/DAY
     Route: 037

REACTIONS (8)
  - Somnolence [Recovered/Resolved]
  - Sedation [Recovered/Resolved]
  - Paralysis [Recovered/Resolved]
  - Substance use [Unknown]
  - Bladder disorder [Recovered/Resolved]
  - Fall [Recovered/Resolved]
  - Activities of daily living impaired [Recovered/Resolved]
  - Device occlusion [Recovered/Resolved]

NARRATIVE: CASE EVENT DATE: 20150715
